FAERS Safety Report 4426076-3 (Version None)
Quarter: 2004Q3

REPORT INFORMATION
  Report Type: 
  Country: None (occurrence: None)
  Receive Date: 20040811
  Receipt Date: 20040722
  Transmission Date: 20050211
  Serious: Yes (Death)
  Sender: FDA-Public Use
  Company Number: B0339181A

PATIENT
  Age: 76 Year
  Sex: Male

DRUGS (6)
  1. LITHIUM SALT (LITHIUM SALT) [Suspect]
  2. CHLOPROMAZINE HCL [Concomitant]
  3. PROCYCLIDINE HCL [Concomitant]
  4. NITRAZEPAM [Concomitant]
  5. ZOPICLONE [Concomitant]
  6. FRUSEMIDE [Concomitant]

REACTIONS (18)
  - AGGRESSION [None]
  - BLOOD CREATININE INCREASED [None]
  - BLOOD POTASSIUM INCREASED [None]
  - BLOOD SODIUM INCREASED [None]
  - BLOOD UREA INCREASED [None]
  - CACHEXIA [None]
  - CLUBBING [None]
  - DELIRIUM [None]
  - DEPRESSED LEVEL OF CONSCIOUSNESS [None]
  - GASTROINTESTINAL HAEMORRHAGE [None]
  - HYPERCALCAEMIA [None]
  - HYPOTENSION [None]
  - LUNG NEOPLASM MALIGNANT [None]
  - MASS [None]
  - NEPHROGENIC DIABETES INSIPIDUS [None]
  - PNEUMONIA [None]
  - SUPERINFECTION [None]
  - VOMITING [None]
